FAERS Safety Report 7661004-9 (Version None)
Quarter: 2011Q3

REPORT INFORMATION
  Report Type: 
  Country: None (occurrence: None)
  Receive Date: 20110805
  Receipt Date: 20101008
  Transmission Date: 20111222
  Serious: No
  Sender: FDA-Public Use
  Company Number: US-ABBOTT-10P-163-0677599-00

PATIENT
  Sex: Male
  Weight: 97.61 kg

DRUGS (15)
  1. PLAVIX [Concomitant]
     Indication: PRODUCT USED FOR UNKNOWN INDICATION
  2. VOLTAREN [Concomitant]
     Indication: PAIN
  3. METFORMIN HCL [Concomitant]
     Indication: DIABETES MELLITUS
  4. ALPRAZOLAM [Concomitant]
     Indication: ANXIETY
  5. JENUVIA [Concomitant]
     Indication: DIABETES MELLITUS
  6. NEXIUM [Concomitant]
     Indication: GASTROOESOPHAGEAL REFLUX DISEASE
  7. METOPROLOL TARTRATE [Concomitant]
     Indication: PRODUCT USED FOR UNKNOWN INDICATION
  8. NIASPAN [Suspect]
  9. ISOSORBIDE MONOTRATE [Concomitant]
     Indication: PRODUCT USED FOR UNKNOWN INDICATION
  10. LIPITOR [Concomitant]
     Indication: PRODUCT USED FOR UNKNOWN INDICATION
  11. DIOVAN [Concomitant]
     Indication: HYPERTENSION
  12. TRAMADOL HCL [Concomitant]
     Indication: PAIN IN EXTREMITY
  13. NIASPAN [Suspect]
     Indication: BLOOD CHOLESTEROL INCREASED
     Dates: start: 20100823
  14. ASPIRIN [Concomitant]
     Indication: PRODUCT USED FOR UNKNOWN INDICATION
  15. MULTIPLE VITAMINS [Concomitant]
     Indication: VITAMIN SUPPLEMENTATION

REACTIONS (4)
  - PARAESTHESIA [None]
  - HYPERHIDROSIS [None]
  - HOT FLUSH [None]
  - FLUSHING [None]
